FAERS Safety Report 14197610 (Version 2)
Quarter: 2018Q2

REPORT INFORMATION
  Report Type: Spontaneous
  Country: FR (occurrence: FR)
  Receive Date: 20171116
  Receipt Date: 20180515
  Transmission Date: 20180711
  Serious: Yes (Other)
  Sender: FDA-Public Use
  Company Number: FR-MERCK KGAA-2034438

PATIENT
  Age: 62 Year
  Sex: Female
  Weight: 85 kg

DRUGS (1)
  1. NOVOTHYROX [Suspect]
     Active Substance: LEVOTHYROXINE SODIUM
     Indication: POST PROCEDURAL HYPOTHYROIDISM
     Dates: start: 201704

REACTIONS (48)
  - Hepatotoxicity [None]
  - Loss of personal independence in daily activities [None]
  - Malaise [None]
  - Urinary incontinence [None]
  - Pruritus [None]
  - Cataract [None]
  - Suicidal ideation [None]
  - Osteoarthritis [None]
  - Alopecia [None]
  - Anal incontinence [None]
  - Headache [None]
  - Gastrointestinal disorder [None]
  - Irritability [None]
  - Stress [None]
  - Decreased interest [None]
  - Dizziness [None]
  - Fatigue [None]
  - Asthenia [None]
  - Gingival pain [None]
  - Diarrhoea [None]
  - Partner stress [None]
  - Glycosylated haemoglobin increased [None]
  - Neoplasm malignant [None]
  - Fall [None]
  - Arrhythmia [None]
  - Blood sodium increased [None]
  - Nausea [None]
  - Depression [None]
  - Muscle spasms [None]
  - Amnesia [None]
  - Mood swings [None]
  - Emotional disorder [None]
  - Impaired work ability [None]
  - Loss of consciousness [None]
  - Infection [None]
  - Anxiety [None]
  - C-reactive protein increased [None]
  - Social avoidant behaviour [None]
  - Blood glucose increased [None]
  - Insomnia [None]
  - Myalgia [None]
  - Toothache [None]
  - Immune system disorder [None]
  - Dyspepsia [None]
  - Blood pressure increased [None]
  - Disturbance in attention [None]
  - Negative thoughts [None]
  - General physical health deterioration [None]

NARRATIVE: CASE EVENT DATE: 20170506
